FAERS Safety Report 5732812-6 (Version None)
Quarter: 2008Q2

REPORT INFORMATION
  Report Type: 
  Country: None (occurrence: None)
  Receive Date: 20080507
  Receipt Date: 20080507
  Transmission Date: 20081010
  Serious: Yes (Hospitalization)
  Sender: FDA-Public Use
  Company Number: None

PATIENT
  Sex: Male
  Weight: 60 kg

DRUGS (8)
  1. FLUOROURACIL [Suspect]
     Dosage: 2380 MG
  2. CISPLATIN [Suspect]
     Dosage: 102 MG
  3. ERBITUX [Suspect]
     Dosage: 425 MG
  4. ELLENCE [Suspect]
     Dosage: 64 MG
  5. BENICAR [Concomitant]
  6. CRESTOR [Concomitant]
  7. DOXYCYCLINE [Concomitant]
  8. TRICOR [Concomitant]

REACTIONS (3)
  - COUGH [None]
  - FEBRILE NEUTROPENIA [None]
  - SEPSIS [None]
